FAERS Safety Report 7442857-6 (Version None)
Quarter: 2011Q2

REPORT INFORMATION
  Report Type: 
  Country: None (occurrence: None)
  Receive Date: 20110428
  Receipt Date: 20110419
  Transmission Date: 20111010
  Serious: Yes (Other)
  Sender: FDA-Public Use
  Company Number: US-JNJFOC-20110409023

PATIENT
  Age: 63 Year
  Sex: Female
  Weight: 66.23 kg

DRUGS (4)
  1. IMODIUM A-D EZ CHEWS [Suspect]
     Indication: DIARRHOEA
     Dosage: 1 CHEWABLE TABLET AS NEEDED
     Route: 048
  2. WELLBUTRIN [Concomitant]
     Indication: DEPRESSION
     Route: 048
  3. SYNTHROID [Concomitant]
     Indication: HYPOTHYROIDISM
     Route: 048
  4. IMODIUM A-D EZ CHEWS [Suspect]
     Indication: ABDOMINAL PAIN UPPER
     Dosage: 1 CHEWABLE TABLET AS NEEDED
     Route: 048

REACTIONS (3)
  - HYPOAESTHESIA [None]
  - PRODUCT TASTE ABNORMAL [None]
  - THROAT IRRITATION [None]
